FAERS Safety Report 21196359 (Version 1)
Quarter: 2022Q3

REPORT INFORMATION
  Report Type: Spontaneous
  Country: US (occurrence: None)
  Receive Date: 20220810
  Receipt Date: 20220810
  Transmission Date: 20221027
  Serious: Yes (Life-Threatening)
  Sender: FDA-Public Use
  Company Number: None

PATIENT
  Age: 79 Year
  Sex: Male
  Weight: 93.9 kg

DRUGS (4)
  1. HYALURONIDASE (HUMAN RECOMBINANT) [Suspect]
     Active Substance: HYALURONIDASE (HUMAN RECOMBINANT)
     Indication: Mantle cell lymphoma
     Route: 058
     Dates: start: 20220629
  2. RITUXIMAB [Suspect]
     Active Substance: RITUXIMAB
     Indication: Mantle cell lymphoma
     Route: 058
     Dates: start: 20220629
  3. POLATUZUMAB VEDOTIN [Suspect]
     Active Substance: POLATUZUMAB VEDOTIN
     Indication: Mantle cell lymphoma
     Route: 041
     Dates: start: 20220608
  4. VENETOCLAX [Suspect]
     Active Substance: VENETOCLAX
     Indication: Mantle cell lymphoma
     Dates: start: 20220629

REACTIONS (13)
  - Respirovirus test positive [None]
  - Pneumonia [None]
  - Hypertension [None]
  - Tachycardia [None]
  - Tachypnoea [None]
  - White blood cell count decreased [None]
  - Haemoglobin decreased [None]
  - Platelet count decreased [None]
  - Blood creatinine decreased [None]
  - Carbon dioxide decreased [None]
  - Blood lactic acid increased [None]
  - Condition aggravated [None]
  - Wheezing [None]

NARRATIVE: CASE EVENT DATE: 20220808
